FAERS Safety Report 11422886 (Version 1)
Quarter: 2015Q3

REPORT INFORMATION
  Report Type: Spontaneous
  Country: FR (occurrence: FR)
  Receive Date: 20150827
  Receipt Date: 20150827
  Transmission Date: 20151125
  Serious: Yes (Other)
  Sender: FDA-Public Use
  Company Number: FR-009507513-1508FRA008523

PATIENT
  Age: 1 Year
  Sex: Female
  Weight: 7.5 kg

DRUGS (10)
  1. COZAAR [Suspect]
     Active Substance: LOSARTAN POTASSIUM
     Dosage: 10 MG, QD
     Route: 048
     Dates: start: 20150617
  2. NEORECORMON [Suspect]
     Active Substance: ERYTHROPOIETIN
     Dosage: INJECTABLE SOLUTION FOR PRE-FILLED SYRINGE: 0.4286 DF (1 DF, TIW)
     Route: 042
     Dates: start: 20150611
  3. UN ALFA [Suspect]
     Active Substance: ALFACALCIDOL
     Dosage: ORAL SOLUTION IN DROPS: 2 DF (2 DROPS)
     Route: 048
     Dates: start: 20150526
  4. LOXEN [Suspect]
     Active Substance: NICARDIPINE HYDROCHLORIDE
     Dosage: UNK
     Route: 048
     Dates: start: 20150617
  5. CATAPRESSAN [Suspect]
     Active Substance: CLONIDINE
     Dosage: 0.25 DF, BID
     Route: 048
     Dates: start: 20150702
  6. RENVELA [Suspect]
     Active Substance: SEVELAMER CARBONATE
     Dosage: POWDER FOR ORAL SUSPENSION
     Route: 048
     Dates: start: 20150618
  7. KAYEXALATE [Suspect]
     Active Substance: SODIUM POLYSTYRENE SULFONATE
     Dosage: 3.5 G, BID
     Route: 048
     Dates: start: 20150610
  8. DEDROGYL [Suspect]
     Active Substance: CALCIFEDIOL
     Dosage: ORAL SOLUTION IN DROPS (STRENGTH: 15/100 MG/ML): 3 DF (3 DROPS)
     Route: 048
     Dates: start: 20150526
  9. CARDENSIEL [Suspect]
     Active Substance: BISOPROLOL FUMARATE
     Dosage: 0.3 MG, QD
     Route: 048
     Dates: start: 20150626
  10. URSOFALK [Suspect]
     Active Substance: URSODIOL
     Dosage: STRENGTH (50 MG/ML)
     Route: 048
     Dates: start: 20150612

REACTIONS (1)
  - Eosinophilia [Recovering/Resolving]

NARRATIVE: CASE EVENT DATE: 20150713
